FAERS Safety Report 6138144-9 (Version None)
Quarter: 2009Q1

REPORT INFORMATION
  Report Type: 
  Country: None (occurrence: None)
  Receive Date: 20090327
  Receipt Date: 20090316
  Transmission Date: 20090719
  Serious: Yes (Death)
  Sender: FDA-Public Use
  Company Number: 1000005254

PATIENT
  Age: 36 Year
  Sex: Female

DRUGS (11)
  1. CARBAMAZEPINE [Suspect]
  2. CELEXA [Suspect]
  3. ZYPREXA [Suspect]
     Dosage: 1 IN 1 D)
  4. SOMA [Suspect]
  5. LANSOPRAZOLE [Suspect]
  6. FEXOFENADINE [Suspect]
  7. METRONIDAZOLE [Suspect]
  8. CLONAZEPAM [Concomitant]
  9. DEXTROPROPOXYPHENE [Suspect]
  10. ATORVASTATIN [Suspect]
  11. BUSPIRONE HCL [Suspect]

REACTIONS (1)
  - DRUG TOXICITY [None]
